FAERS Safety Report 9557077 (Version 8)
Quarter: 2015Q2

REPORT INFORMATION
  Report Type: Report from Study
  Country: JP (occurrence: JP)
  Receive Date: 20130926
  Receipt Date: 20150403
  Transmission Date: 20150821
  Serious: Yes (Death, Life-Threatening, Hospitalization)
  Sender: FDA-Public Use
  Company Number: JP-ABBVIE-13P-087-1151587-00

PATIENT
  Age: 42 Year
  Sex: Female

DRUGS (5)
  1. LIPACREON CAPSULES 150 MG [Suspect]
     Active Substance: PANCRELIPASE
     Indication: PANCREATIC INSUFFICIENCY
     Route: 048
     Dates: start: 20121211, end: 20121212
  2. LIPACREON CAPSULES 150 MG [Suspect]
     Active Substance: PANCRELIPASE
     Route: 065
     Dates: start: 20121213, end: 20121229
  3. OMEPRAZOLE. [Concomitant]
     Active Substance: OMEPRAZOLE
     Indication: GASTROOESOPHAGEAL REFLUX PROPHYLAXIS
     Dosage: DAILY DOSE: 20MG, IN THE MORNING
     Route: 048
     Dates: start: 20121211, end: 20131225
  4. LIPACREON CAPSULES 150 MG [Suspect]
     Active Substance: PANCRELIPASE
     Route: 065
     Dates: start: 20130425, end: 20131225
  5. LANSOPRAZOLE. [Concomitant]
     Active Substance: LANSOPRAZOLE
     Indication: PANCREATIC INSUFFICIENCY
     Route: 048
     Dates: end: 20140304

REACTIONS (5)
  - Hypoproteinaemia [Not Recovered/Not Resolved]
  - Anaemia [Recovering/Resolving]
  - Pancreatic carcinoma [Fatal]
  - Anaemia [Unknown]
  - Jaundice cholestatic [Recovering/Resolving]

NARRATIVE: CASE EVENT DATE: 20130401
